FAERS Safety Report 11613862 (Version 2)
Quarter: 2015Q4

REPORT INFORMATION
  Report Type: Spontaneous
  Country: IT (occurrence: IT)
  Receive Date: 20151008
  Receipt Date: 20151012
  Transmission Date: 20160304
  Serious: Yes (Hospitalization, Other)
  Sender: FDA-Public Use
  Company Number: IT-ASTRAZENECA-2015SE96649

PATIENT
  Age: 17985 Day
  Sex: Male

DRUGS (2)
  1. SEROQUEL [Suspect]
     Active Substance: QUETIAPINE FUMARATE
     Indication: INTENTIONAL SELF-INJURY
     Dosage: 200 MG FILM COATED TABLETS, TOTALLY FIVE DOSAGE FORMS
     Route: 048
     Dates: start: 20150630, end: 20150630
  2. OLANZAPINE. [Suspect]
     Active Substance: OLANZAPINE
     Indication: INTENTIONAL SELF-INJURY
     Dosage: TOTALLY 60 MILLIGRAMS
     Route: 048
     Dates: start: 20150630, end: 20150630

REACTIONS (7)
  - Blood glucose increased [Unknown]
  - Blood creatine phosphokinase increased [Unknown]
  - Drug abuse [Recovered/Resolved]
  - Tachycardia [Recovered/Resolved]
  - Vomiting [Recovered/Resolved]
  - Presyncope [Recovered/Resolved]
  - Hypotension [Recovered/Resolved]

NARRATIVE: CASE EVENT DATE: 20150630
